FAERS Safety Report 25763170 (Version 1)
Quarter: 2025Q3

REPORT INFORMATION
  Report Type: Spontaneous
  Country: US (occurrence: US)
  Receive Date: 20250905
  Receipt Date: 20250905
  Transmission Date: 20251021
  Serious: No
  Sender: ELI LILLY AND COMPANY
  Company Number: US-ELI_LILLY_AND_COMPANY-US202509004167

PATIENT
  Age: 29 Year
  Sex: Female

DRUGS (4)
  1. FLUOXETINE HYDROCHLORIDE [Suspect]
     Active Substance: FLUOXETINE HYDROCHLORIDE
     Indication: Product used for unknown indication
     Dosage: UNK, 1X/DAY (HS)
     Route: 065
     Dates: start: 20250811
  2. CAPLYTA [Suspect]
     Active Substance: LUMATEPERONE
     Indication: Product used for unknown indication
     Dosage: 42 MG, DAILY (1X/DAY) (HS)
     Route: 048
     Dates: start: 20250811, end: 202508
  3. CAPLYTA [Suspect]
     Active Substance: LUMATEPERONE
     Dosage: 42 MG, DAILY (1X/DAY) (AM)
     Route: 048
     Dates: start: 202508
  4. TRAZODONE [Suspect]
     Active Substance: TRAZODONE HYDROCHLORIDE
     Indication: Product used for unknown indication
     Dosage: UNK, 1X/DAY (HS)
     Route: 065
     Dates: start: 20250811

REACTIONS (4)
  - Migraine [Recovering/Resolving]
  - Vomiting [Recovering/Resolving]
  - Somnolence [Recovering/Resolving]
  - Dry mouth [Recovering/Resolving]

NARRATIVE: CASE EVENT DATE: 20250812
